FAERS Safety Report 5615020-9 (Version None)
Quarter: 2008Q1

REPORT INFORMATION
  Report Type: 
  Country: None (occurrence: None)
  Receive Date: 20080206
  Receipt Date: 20080128
  Transmission Date: 20080703
  Serious: Yes (Other)
  Sender: FDA-Public Use
  Company Number: US-WYE-H01716507

PATIENT
  Sex: Female

DRUGS (10)
  1. PROTONIX [Suspect]
     Indication: DYSPEPSIA
     Route: 048
     Dates: start: 20071201
  2. PROTONIX [Suspect]
     Indication: NAUSEA
  3. CADUET [Concomitant]
     Dosage: UNKNOWN
  4. HYDROCHLOROTHIAZIDE [Concomitant]
     Dosage: UNKNOWN
  5. LEVOTHYROXINE SODIUM [Concomitant]
     Indication: HYPOTHYROIDISM
     Dosage: UNKNOWN
  6. COZAAR [Concomitant]
     Dosage: UNKNOWN
  7. WARFARIN SODIUM [Concomitant]
     Dosage: UNKNOWN
  8. POTASSIUM CHLORIDE [Concomitant]
     Dosage: UNKNOWN
  9. ALTACE [Concomitant]
     Dosage: UNKNOWN
  10. COREG [Concomitant]
     Dosage: UNKNOWN

REACTIONS (4)
  - CONDITION AGGRAVATED [None]
  - CORNEAL EROSION [None]
  - DRUG INEFFECTIVE [None]
  - TRANSIENT ISCHAEMIC ATTACK [None]
